FAERS Safety Report 24395263 (Version 4)
Quarter: 2024Q4

REPORT INFORMATION
  Report Type: Spontaneous
  Country: BR (occurrence: BR)
  Receive Date: 20241004
  Receipt Date: 20241011
  Transmission Date: 20250115
  Serious: Yes (Hospitalization, Other)
  Sender: MERCK
  Company Number: BR-009507513-2409BRA009124

PATIENT
  Age: 82 Year
  Sex: Female

DRUGS (8)
  1. PEMBROLIZUMAB [Suspect]
     Active Substance: PEMBROLIZUMAB
     Dosage: 200 MILLIGRAM, Q3W
     Route: 042
     Dates: start: 2021, end: 20240125
  2. PEMBROLIZUMAB [Suspect]
     Active Substance: PEMBROLIZUMAB
     Dosage: DOSE REDUCED, 25%
  3. EMEND (FOSAPREPITANT DIMEGLUMINE) [Suspect]
     Active Substance: FOSAPREPITANT DIMEGLUMINE
     Dosage: UNK
     Route: 042
     Dates: start: 2021, end: 20240125
  4. EMEND (FOSAPREPITANT DIMEGLUMINE) [Suspect]
     Active Substance: FOSAPREPITANT DIMEGLUMINE
     Dosage: DOSE REDUCED 25%
     Route: 042
  5. FLUOROURACIL [Suspect]
     Active Substance: FLUOROURACIL
     Dosage: 1000 MG/M2 DAY
     Route: 042
  6. FLUOROURACIL [Suspect]
     Active Substance: FLUOROURACIL
     Dosage: REDUCED 25%
     Route: 042
  7. CISPLATIN [Suspect]
     Active Substance: CISPLATIN
     Dosage: 100 MG/M2
     Route: 042
  8. CISPLATIN [Suspect]
     Active Substance: CISPLATIN
     Dosage: DOSE REDUCED 25%
     Route: 042

REACTIONS (15)
  - Hospitalisation [Unknown]
  - Neutropenia [Unknown]
  - Neurotoxicity [Not Recovered/Not Resolved]
  - Neuropathy peripheral [Unknown]
  - Dehydration [Unknown]
  - Anaemia [Unknown]
  - Umbilical hernia [Unknown]
  - Osteoporosis [Unknown]
  - Osteopenia [Unknown]
  - Colorectal adenoma [Unknown]
  - Inguinal hernia [Unknown]
  - Arteriosclerosis [Unknown]
  - Lung cyst [Unknown]
  - Pulmonary mass [Unknown]
  - Pulmonary granuloma [Unknown]

NARRATIVE: CASE EVENT DATE: 20210101
